FAERS Safety Report 17303065 (Version 2)
Quarter: 2020Q1

REPORT INFORMATION
  Report Type: Spontaneous
  Country: US (occurrence: US)
  Receive Date: 20200122
  Receipt Date: 20200127
  Transmission Date: 20200409
  Serious: Yes (Hospitalization)
  Sender: FDA-Public Use
  Company Number: US-PURDUE-USA-2020-0149693

PATIENT
  Age: 97 Year
  Sex: Female

DRUGS (1)
  1. COLACE [Suspect]
     Active Substance: DOCUSATE SODIUM
     Indication: CONSTIPATION PROPHYLAXIS
     Dosage: UNK, PRN
     Route: 048
     Dates: start: 201811

REACTIONS (2)
  - Cardiac pacemaker insertion [Recovered/Resolved]
  - Constipation [Unknown]

NARRATIVE: CASE EVENT DATE: 20200114
